FAERS Safety Report 9161189 (Version 3)
Quarter: 2013Q1

REPORT INFORMATION
  Report Type: Spontaneous
  Country: CO (occurrence: CO)
  Receive Date: 20130313
  Receipt Date: 20130320
  Transmission Date: 20140127
  Serious: Yes (Hospitalization)
  Sender: FDA-Public Use
  Company Number: CO-009507513-1209COL000401

PATIENT
  Age: 58 Year
  Sex: Female
  Weight: 84 kg

DRUGS (6)
  1. PEG-INTRON [Suspect]
     Indication: HEPATITIS C
     Dosage: UNK
     Dates: start: 20120514
  2. VICTRELIS [Suspect]
     Dosage: UNK
     Route: 048
     Dates: start: 20120612
  3. REBETOL [Suspect]
     Dosage: UNK
     Route: 048
  4. REBETOL [Suspect]
     Dosage: 600 MG, QD
  5. EPOETIN [Concomitant]
  6. METFORMIN [Concomitant]
     Dosage: UNK, QD

REACTIONS (6)
  - Gastroenteritis [Recovered/Resolved]
  - Full blood count decreased [Unknown]
  - Asthenia [Recovered/Resolved]
  - Diarrhoea [Recovered/Resolved]
  - Pyrexia [Recovered/Resolved]
  - Abdominal pain [Recovered/Resolved]
